FAERS Safety Report 9918460 (Version 1)
Quarter: 2014Q1

REPORT INFORMATION
  Report Type: Spontaneous
  Country: US (occurrence: US)
  Receive Date: 20140224
  Receipt Date: 20140224
  Transmission Date: 20141002
  Serious: No
  Sender: FDA-Public Use
  Company Number: US-BIOGENIDEC-2013BI086424

PATIENT
  Age: 37 Year
  Sex: Female

DRUGS (2)
  1. TECFIDERA [Suspect]
     Indication: MULTIPLE SCLEROSIS
     Dates: start: 20130701, end: 20130801
  2. AVONEX [Concomitant]
     Indication: MULTIPLE SCLEROSIS
     Route: 030
     Dates: start: 20000101

REACTIONS (11)
  - Skin swelling [Unknown]
  - Skin exfoliation [Recovered/Resolved]
  - Skin warm [Recovered/Resolved]
  - Tinnitus [Recovered/Resolved]
  - Psoriasis [Recovered/Resolved]
  - Headache [Not Recovered/Not Resolved]
  - Vertigo [Not Recovered/Not Resolved]
  - Skin burning sensation [Unknown]
  - Erythema [Unknown]
  - Flushing [Recovered/Resolved]
  - Nausea [Not Recovered/Not Resolved]
